FAERS Safety Report 17997687 (Version 1)
Quarter: 2020Q3

REPORT INFORMATION
  Report Type: Spontaneous
  Country: RO (occurrence: RO)
  Receive Date: 20200708
  Receipt Date: 20200708
  Transmission Date: 20201103
  Serious: Yes (Other)
  Sender: FDA-Public Use
  Company Number: NVSC2020RO185356

PATIENT
  Age: 67 Year
  Sex: Female
  Weight: 95 kg

DRUGS (5)
  1. DOXORUBICIN [Suspect]
     Active Substance: DOXORUBICIN
     Indication: BREAST CANCER METASTATIC
     Dosage: 120 MG, TIW (Q3W ?EVERY 3 WEEKS)
     Route: 042
     Dates: start: 20180807, end: 20181015
  2. CYCLOPHOSPHAMIDE. [Suspect]
     Active Substance: CYCLOPHOSPHAMIDE
     Indication: BREAST CANCER METASTATIC
     Dosage: 1200 MG, TIW (Q3W ? EVERY 3 WEEKS)
     Route: 042
     Dates: start: 20180807, end: 20181015
  3. TRASTUZUMAB. [Suspect]
     Active Substance: TRASTUZUMAB
     Indication: BREAST CANCER METASTATIC
     Dosage: 600 MG, TIW (Q3W ? EVERY 3 WEEKS)
     Route: 041
     Dates: start: 20181106
  4. DOCETAXEL. [Suspect]
     Active Substance: DOCETAXEL
     Indication: BREAST CANCER METASTATIC
     Dosage: 150 MG, TIW (Q3W ? EVERY 3 WEEKS)
     Route: 042
     Dates: start: 20181106, end: 20190208
  5. ANASTROZOLE. [Suspect]
     Active Substance: ANASTROZOLE
     Indication: BREAST CANCER METASTATIC
     Dosage: 1 MG, QD
     Route: 048
     Dates: start: 20190513

REACTIONS (1)
  - Cardiotoxicity [Recovered/Resolved]

NARRATIVE: CASE EVENT DATE: 20190510
